FAERS Safety Report 16698007 (Version 2)
Quarter: 2020Q2

REPORT INFORMATION
  Report Type: Spontaneous
  Country: US (occurrence: US)
  Receive Date: 20190813
  Receipt Date: 20200401
  Transmission Date: 20200713
  Serious: Yes (Other)
  Sender: FDA-Public Use
  Company Number: US-SA-2019SA222189

PATIENT
  Age: 52 Year
  Sex: Female

DRUGS (14)
  1. FLOVENT [Concomitant]
     Active Substance: FLUTICASONE PROPIONATE
  2. VENTOLINE [SALBUTAMOL] [Concomitant]
     Active Substance: ALBUTEROL SULFATE
  3. DUPIXENT [Suspect]
     Active Substance: DUPILUMAB
     Indication: DERMATITIS ATOPIC
     Dosage: 300 MG, QOW
     Route: 058
     Dates: start: 20190717
  4. MONTELUKAST [Concomitant]
     Active Substance: MONTELUKAST SODIUM
  5. ECONAZOLE. [Concomitant]
     Active Substance: ECONAZOLE NITRATE
  6. PHRENILIN [Concomitant]
     Active Substance: ACETAMINOPHEN\BUTALBITAL
  7. XALATAN [Concomitant]
     Active Substance: LATANOPROST
  8. LORAZEPAM. [Concomitant]
     Active Substance: LORAZEPAM
  9. LOSARTAN. [Concomitant]
     Active Substance: LOSARTAN
  10. VESICARE [Concomitant]
     Active Substance: SOLIFENACIN SUCCINATE
  11. FLUTICASONE. [Concomitant]
     Active Substance: FLUTICASONE
  12. AMOXICILLIN. [Concomitant]
     Active Substance: AMOXICILLIN
  13. SERTRALINE [Concomitant]
     Active Substance: SERTRALINE HYDROCHLORIDE
  14. ZYRTEC [Concomitant]
     Active Substance: CETIRIZINE HYDROCHLORIDE

REACTIONS (3)
  - Cataract [Unknown]
  - Sinusitis [Not Recovered/Not Resolved]
  - Erythema [Not Recovered/Not Resolved]

NARRATIVE: CASE EVENT DATE: 2019
